FAERS Safety Report 13614366 (Version 3)
Quarter: 2024Q3

REPORT INFORMATION
  Report Type: Spontaneous
  Country: US (occurrence: US)
  Receive Date: 20170606
  Receipt Date: 20240722
  Transmission Date: 20241016
  Serious: Yes (Other)
  Sender: AUROBINDO
  Company Number: US-AUROBINDO-AUR-APL-2017-34897

PATIENT
  Age: 6 Month
  Sex: Male
  Weight: 4.7 kg

DRUGS (16)
  1. DEXMEDETOMIDINE [Suspect]
     Active Substance: DEXMEDETOMIDINE
     Indication: Agitation
     Dosage: 2 MICROGRAM/KILOGRAM (2 ?G/KG/HOUR)
     Route: 042
  2. DEXMEDETOMIDINE [Suspect]
     Active Substance: DEXMEDETOMIDINE
     Dosage: 19 BOLUSES IN A 24-HOUR PERIOD
     Route: 040
  3. DEXMEDETOMIDINE [Suspect]
     Active Substance: DEXMEDETOMIDINE
     Dosage: ONE DOSE
     Route: 040
  4. GABAPENTIN [Suspect]
     Active Substance: GABAPENTIN
     Indication: Agitation
     Dosage: 5 MILLIGRAM/KILOGRAM, 3 TIMES A DAY (5 MG/KG, EVERY 8 HOURS)
     Route: 065
  5. LORAZEPAM [Suspect]
     Active Substance: LORAZEPAM
     Indication: Agitation
     Dosage: 0.1 MG/KG, UNK
     Route: 042
  6. METHADONE [Suspect]
     Active Substance: METHADONE HYDROCHLORIDE
     Indication: Agitation
     Dosage: 0.15 MILLIGRAM/KILOGRAM, FOUR TIMES/DAY  (0.15 MG/KG,EVERY SIX HOURS)
     Route: 042
  7. DIAZEPAM [Suspect]
     Active Substance: DIAZEPAM
     Indication: Agitation
     Dosage: 0.1 MG/KG, UNK
     Route: 065
  8. DIAZEPAM [Suspect]
     Active Substance: DIAZEPAM
     Dosage: 0.15 MILLIGRAM/KILOGRAM, FOUR TIMES/DAY
     Route: 042
  9. FENTANYL [Suspect]
     Active Substance: FENTANYL\FENTANYL CITRATE
     Indication: Agitation
     Dosage: 1 ?G/KG/HOUR
     Route: 042
  10. FENTANYL [Suspect]
     Active Substance: FENTANYL\FENTANYL CITRATE
     Dosage: 19 BOLUSES IN A 24-HOUR PERIOD
     Route: 040
  11. FENTANYL [Suspect]
     Active Substance: FENTANYL\FENTANYL CITRATE
     Dosage: 3 DOSES
     Route: 040
  12. MIDAZOLAM [Suspect]
     Active Substance: MIDAZOLAM
     Indication: Agitation
     Dosage: 1 MICROGRAM/KILOGRAM (PER MIN) (1 ?G/KG/MIN)
     Route: 042
  13. MIDAZOLAM [Suspect]
     Active Substance: MIDAZOLAM
     Dosage: 3 MICROGRAM/KILOGRAM (PER MIN) (3 ?G/KG/MIN)
     Route: 042
  14. MIDAZOLAM [Suspect]
     Active Substance: MIDAZOLAM
     Dosage: 19 BOLUSES
     Route: 040
  15. MORPHINE [Suspect]
     Active Substance: MORPHINE
     Indication: Agitation
     Dosage: 50 MICROGRAM/KILOGRAM
     Route: 042
  16. PHENOBARBITAL [Suspect]
     Active Substance: PHENOBARBITAL
     Indication: Agitation
     Dosage: 5 MILLIGRAM/KILOGRAM, DAILY
     Route: 042

REACTIONS (9)
  - Delirium [Recovered/Resolved]
  - Restlessness [Recovered/Resolved]
  - Irritability [Recovered/Resolved]
  - Crying [Recovered/Resolved]
  - Dyskinesia [Recovered/Resolved]
  - Head titubation [Recovered/Resolved]
  - Tremor [Recovered/Resolved]
  - Mental status changes [Recovered/Resolved]
  - Condition aggravated [Recovered/Resolved]
